FAERS Safety Report 15964806 (Version 2)
Quarter: 2019Q1

REPORT INFORMATION
  Report Type: Spontaneous
  Country: US (occurrence: US)
  Receive Date: 20190215
  Receipt Date: 20190304
  Transmission Date: 20190418
  Serious: No
  Sender: FDA-Public Use
  Company Number: US-LUNDBECK-DKLU2060496

PATIENT
  Sex: Male

DRUGS (2)
  1. NORTHERA [Suspect]
     Active Substance: DROXIDOPA
     Indication: PRODUCT USED FOR UNKNOWN INDICATION
     Route: 065
  2. NORTHERA [Suspect]
     Active Substance: DROXIDOPA
     Route: 048
     Dates: start: 20190216

REACTIONS (4)
  - Flushing [Unknown]
  - Pallor [Unknown]
  - Blood pressure decreased [Unknown]
  - Fatigue [Unknown]
